FAERS Safety Report 19572547 (Version 4)
Quarter: 2023Q2

REPORT INFORMATION
  Report Type: Spontaneous
  Country: JP (occurrence: JP)
  Receive Date: 20210716
  Receipt Date: 20230605
  Transmission Date: 20230721
  Serious: Yes (Other)
  Sender: FDA-Public Use
  Company Number: JP-BRISTOL-MYERS SQUIBB COMPANY-BMS-2021-069666

PATIENT
  Age: 68 Year
  Sex: Female

DRUGS (2)
  1. OPDIVO [Suspect]
     Active Substance: NIVOLUMAB
     Indication: Malignant melanoma
     Dosage: UNK
     Route: 041
  2. AMOXICILLIN [Suspect]
     Active Substance: AMOXICILLIN
     Indication: Cellulitis
     Dosage: UNK

REACTIONS (2)
  - Cellulitis [Unknown]
  - Erythema [Recovering/Resolving]
